FAERS Safety Report 20476411 (Version 2)
Quarter: 2022Q1

REPORT INFORMATION
  Report Type: Report from Study
  Country: IL (occurrence: IL)
  Receive Date: 20220215
  Receipt Date: 20220301
  Transmission Date: 20220423
  Serious: Yes (Hospitalization)
  Sender: FDA-Public Use
  Company Number: IL-NOVARTISPH-NVSC2022IL033618

PATIENT
  Age: 80 Year
  Sex: Female

DRUGS (3)
  1. SANDOSTATIN LAR DEPOT [Suspect]
     Active Substance: OCTREOTIDE ACETATE
     Indication: Acromegaly
     Dosage: 20 MG, Q4W
     Route: 030
     Dates: start: 20100408
  2. SANDOSTATIN LAR DEPOT [Suspect]
     Active Substance: OCTREOTIDE ACETATE
  3. SANDOSTATIN LAR DEPOT [Suspect]
     Active Substance: OCTREOTIDE ACETATE

REACTIONS (4)
  - Gastrointestinal injury [Recovering/Resolving]
  - Abdominal pain [Unknown]
  - Asthenia [Unknown]
  - Pancreatic cyst [Unknown]

NARRATIVE: CASE EVENT DATE: 20220131
